FAERS Safety Report 9149280 (Version 2)
Quarter: 2013Q2

REPORT INFORMATION
  Report Type: Spontaneous
  Country: US (occurrence: US)
  Receive Date: 20130308
  Receipt Date: 20130424
  Transmission Date: 20140414
  Serious: Yes (Death, Hospitalization, Other)
  Sender: FDA-Public Use
  Company Number: US-PFIZER INC-2013077908

PATIENT
  Age: 45 Year
  Sex: Male
  Weight: 113 kg

DRUGS (8)
  1. SUTENT [Suspect]
     Indication: RENAL CANCER
     Dosage: 50 MG, 1X/DAY
     Route: 048
     Dates: start: 20121129
  2. SUTENT [Suspect]
     Dosage: 50 MG, 1X/DAY
     Route: 048
     Dates: start: 20121211
  3. SUTENT [Suspect]
     Dosage: UNK
     Dates: start: 20130119, end: 20130129
  4. XANAX [Concomitant]
     Dosage: 1 DF, TID, PNR
     Route: 048
  5. COLACE [Concomitant]
     Dosage: 100 MG (TOTAL), 1 CAPSULE TWO TIMES DAILY
     Route: 048
     Dates: start: 20130103
  6. AMBIEN [Concomitant]
     Indication: INSOMNIA
     Dosage: 5 MG AS NEEDED, 1 TABLET  NIGHTLY
     Route: 048
     Dates: start: 20130103
  7. ALBUTEROL [Concomitant]
     Indication: CHRONIC OBSTRUCTIVE PULMONARY DISEASE
     Dosage: 90 UG, AS NEEDED
     Route: 055
  8. KEPPRA [Concomitant]
     Indication: GRAND MAL CONVULSION
     Dosage: 2000 MG TOTAL, 4 TABLETS TWICE DAILY

REACTIONS (6)
  - Disease progression [Fatal]
  - Renal cancer [Fatal]
  - Pain [Unknown]
  - Respiratory failure [Unknown]
  - Pneumonia [Unknown]
  - Sepsis [Unknown]
